FAERS Safety Report 9909435 (Version 1)
Quarter: 2014Q1

REPORT INFORMATION
  Report Type: Spontaneous
  Country: US (occurrence: US)
  Receive Date: 20140219
  Receipt Date: 20140219
  Transmission Date: 20141002
  Serious: No
  Sender: FDA-Public Use
  Company Number: US-TEVA-463549USA

PATIENT
  Sex: Female
  Weight: 63.56 kg

DRUGS (3)
  1. PARAGARD 380A [Suspect]
     Indication: CONTRACEPTION
     Route: 015
     Dates: start: 201310, end: 20140213
  2. ARMOUR THYROID [Concomitant]
     Indication: HYPOTHYROIDISM
     Dates: start: 201302
  3. LEVOTHYROXINE [Concomitant]
     Indication: HYPOTHYROIDISM
     Dates: start: 2013

REACTIONS (4)
  - Gait disturbance [Unknown]
  - Abdominal pain [Unknown]
  - Back pain [Unknown]
  - Pain in extremity [Unknown]
